FAERS Safety Report 6634175-0 (Version None)
Quarter: 2010Q1

REPORT INFORMATION
  Report Type: 
  Country: None (occurrence: None)
  Receive Date: 20100315
  Receipt Date: 20100225
  Transmission Date: 20100710
  Serious: Yes (Other)
  Sender: FDA-Public Use
  Company Number: US-ASTRAZENECA-2009UW18692

PATIENT
  Age: 76 Year
  Sex: Female
  Weight: 81.6 kg

DRUGS (7)
  1. CRESTOR [Suspect]
     Indication: BLOOD CHOLESTEROL INCREASED
     Route: 048
     Dates: start: 20090301, end: 20090501
  2. TOPROL-XL [Concomitant]
     Route: 048
  3. METHOTREXATE [Concomitant]
  4. DIOVAN [Concomitant]
  5. CLONIDINE [Concomitant]
  6. LUNESTA [Concomitant]
     Dosage: AS REQUIRED
  7. SKELAXIN [Concomitant]
     Dosage: 800 MG AS REQUIRED

REACTIONS (8)
  - ARTHRALGIA [None]
  - GAIT DISTURBANCE [None]
  - LIMB DISCOMFORT [None]
  - MOBILITY DECREASED [None]
  - MUSCLE ATROPHY [None]
  - MUSCULAR WEAKNESS [None]
  - MUSCULOSKELETAL PAIN [None]
  - PAIN IN EXTREMITY [None]
